FAERS Safety Report 8574860-7 (Version None)
Quarter: 2012Q2

REPORT INFORMATION
  Report Type: 
  Country: None (occurrence: None)
  Receive Date: 20120423
  Receipt Date: 20101006
  Transmission Date: 20120825
  Serious: Yes (Hospitalization)
  Sender: FDA-Public Use
  Company Number: PHEH2009US15651

PATIENT
  Sex: Female
  Weight: 91 kg

DRUGS (1)
  1. EXJADE [Suspect]
     Indication: SICKLE CELL ANAEMIA
     Dosage: 1500 MG, QD, ORAL, 2000 MG DAILY, ORAL
     Route: 048
     Dates: start: 20091022

REACTIONS (2)
  - NAUSEA [None]
  - VOMITING [None]
